FAERS Safety Report 5112613-2 (Version None)
Quarter: 2006Q3

REPORT INFORMATION
  Report Type: 
  Country: None (occurrence: None)
  Receive Date: 20060918
  Receipt Date: 20060918
  Transmission Date: 20061208
  Serious: Yes (Other)
  Sender: FDA-Public Use
  Company Number: None

PATIENT
  Age: 76 Year
  Sex: Female

DRUGS (12)
  1. MACRODANTIN [Suspect]
     Dosage: SE IMAGE
     Dates: start: 20040801, end: 20050801
  2. MACRODANTIN [Suspect]
     Dosage: SE IMAGE
     Dates: start: 20040816, end: 20051026
  3. NORVASC [Concomitant]
  4. ENALAPRIL [Concomitant]
  5. LOTREL [Concomitant]
  6. ZOCOR [Concomitant]
  7. ZETIA [Concomitant]
  8. AMBIEN [Concomitant]
  9. ASPIRIN [Concomitant]
  10. CALCIUM  WITH VITAMIN D [Concomitant]
  11. CENTRUM SILVER [Concomitant]
  12. ALEVE [Concomitant]

REACTIONS (4)
  - HEPATIC TRAUMA [None]
  - HEPATITIS CHRONIC ACTIVE [None]
  - HEPATOTOXICITY [None]
  - WEIGHT DECREASED [None]
